FAERS Safety Report 12223834 (Version 1)
Quarter: 2016Q1

REPORT INFORMATION
  Report Type: Other
  Country: NL (occurrence: NL)
  Receive Date: 20160330
  Receipt Date: 20160330
  Transmission Date: 20160526
  Serious: Yes (Death, Other)
  Sender: FDA-Public Use
  Company Number: NL-DEP_13852_2016

PATIENT
  Age: 36 Year
  Sex: Male

DRUGS (12)
  1. ETOPOSIDE. [Concomitant]
     Active Substance: ETOPOSIDE
     Indication: PARAGANGLION NEOPLASM MALIGNANT
     Dosage: 4-WEEKLY CYCLES, 100 MG/M^2 DAYS 1-3
     Route: 042
  2. OXYCODONE IMMEDIATE RELEASE [Suspect]
     Active Substance: OXYCODONE
     Indication: PRODUCT USED FOR UNKNOWN INDICATION
  3. CARBOPLATIN. [Concomitant]
     Active Substance: CARBOPLATIN
     Indication: PALLIATIVE CARE
     Dosage: FOUR-WEEKLY CYCLES, AUC 5 ON DAY 1
     Route: 042
  4. DEXAMETHASONE. [Suspect]
     Active Substance: DEXAMETHASONE
     Indication: PRODUCT USED FOR UNKNOWN INDICATION
  5. FENTANYL. [Suspect]
     Active Substance: FENTANYL
     Indication: PRODUCT USED FOR UNKNOWN INDICATION
     Route: 062
  6. DEXAMETHASONE. [Suspect]
     Active Substance: DEXAMETHASONE
  7. CARBOPLATIN. [Concomitant]
     Active Substance: CARBOPLATIN
     Indication: PARAGANGLION NEOPLASM MALIGNANT
     Dosage: FOUR-WEEKLY CYCLES, AUC 5 ON DAY 1
     Route: 042
  8. METOCLOPRAMIDE. [Suspect]
     Active Substance: METOCLOPRAMIDE
     Indication: PRODUCT USED FOR UNKNOWN INDICATION
     Dosage: DF
  9. ETOPOSIDE. [Concomitant]
     Active Substance: ETOPOSIDE
     Indication: PALLIATIVE CARE
     Dosage: 4-WEEKLY CYCLES, 100 MG/M^2 DAYS 1-3
     Route: 042
  10. RADIOTHERAPY [Concomitant]
     Active Substance: RADIATION THERAPY
     Indication: RETROPERITONEAL MASS
     Dosage: 8 GY
  11. DEXAMETHASONE. [Suspect]
     Active Substance: DEXAMETHASONE
     Dosage: ONCE
     Route: 040
  12. FENTANYL. [Suspect]
     Active Substance: FENTANYL
     Route: 062

REACTIONS (3)
  - Pulmonary oedema [Unknown]
  - Stress cardiomyopathy [Fatal]
  - Pulmonary embolism [Fatal]
